FAERS Safety Report 6432946-7 (Version None)
Quarter: 2009Q4

REPORT INFORMATION
  Report Type: 
  Country: None (occurrence: None)
  Receive Date: 20091105
  Receipt Date: 20091022
  Transmission Date: 20100525
  Serious: Yes (Hospitalization)
  Sender: FDA-Public Use
  Company Number: 1000009778

PATIENT
  Age: 82 Year
  Sex: Female

DRUGS (10)
  1. NEBIVOLOL HCL [Suspect]
     Indication: HYPERTENSION
     Dates: start: 20080408, end: 20081118
  2. TORSEMIDE [Suspect]
     Indication: HYPERTENSION
     Dates: start: 20080409, end: 20081118
  3. RASILEZ [Suspect]
     Indication: HYPERTENSION
     Dosage: 300 MG (300 MG, 1 IN 1 D)
     Dates: start: 20081006, end: 20081118
  4. EXFORGE HCT [Suspect]
     Indication: HYPERTENSION
     Dosage: 10 MG + 160 MG + 12.5 MG (1 IN 1 D)
     Dates: start: 20080409, end: 20081118
  5. EBRANTIL [Suspect]
     Indication: HYPERTENSION
     Dates: start: 20080408, end: 20081118
  6. CORVATON [Concomitant]
  7. ASPIRIN [Concomitant]
  8. SIMAVASTATIN [Concomitant]
  9. SPIRIVA [Concomitant]
  10. FORADIL [Concomitant]

REACTIONS (2)
  - HYPOTENSION [None]
  - VERTIGO [None]
